FAERS Safety Report 8966831 (Version 1)
Quarter: 2012Q4

REPORT INFORMATION
  Report Type: 
  Country: US (occurrence: US)
  Receive Date: 20121214
  Receipt Date: 20121214
  Transmission Date: 20130627
  Serious: Yes (Other)
  Sender: FDA-Public Use
  Company Number: US-AMGEN-USASP2012063701

PATIENT
  Age: 54 Year
  Sex: Female
  Weight: 60.77 kg

DRUGS (4)
  1. XGEVA [Suspect]
     Indication: PRODUCT USED FOR UNKNOWN INDICATION
     Dosage: 120 mg, one time dose
     Route: 058
     Dates: start: 20121128
  2. FEMARA [Concomitant]
     Dosage: 2.5 mg, UNK
     Route: 048
     Dates: start: 200106
  3. CALCIUM [Concomitant]
  4. VITAMIN D /00107901/ [Concomitant]

REACTIONS (3)
  - Wrong drug administered [Unknown]
  - Inappropriate schedule of drug administration [Unknown]
  - Fatigue [Unknown]
